FAERS Safety Report 20126506 (Version 4)
Quarter: 2022Q1

REPORT INFORMATION
  Report Type: Spontaneous
  Country: IT (occurrence: IT)
  Receive Date: 20211129
  Receipt Date: 20220103
  Transmission Date: 20220423
  Serious: Yes (Life-Threatening, Hospitalization, Other)
  Sender: FDA-Public Use
  Company Number: IT-UCBSA-2021044809

PATIENT
  Age: 23 Year
  Sex: Male

DRUGS (18)
  1. LEVETIRACETAM [Suspect]
     Active Substance: LEVETIRACETAM
     Indication: Status epilepticus
     Dosage: 2000 MILLIGRAM, QD, TAPERED OFF
     Route: 042
  2. LEVETIRACETAM [Suspect]
     Active Substance: LEVETIRACETAM
     Indication: Post-traumatic epilepsy
     Dosage: 3000 MILLIGRAM, QD, TAPERED OFF
     Route: 042
  3. MIDAZOLAM [Suspect]
     Active Substance: MIDAZOLAM
     Indication: Status epilepticus
     Dosage: UNK
  4. MIDAZOLAM [Suspect]
     Active Substance: MIDAZOLAM
     Indication: Post-traumatic epilepsy
  5. LACOSAMIDE [Suspect]
     Active Substance: LACOSAMIDE
     Indication: Status epilepticus
     Dosage: 400 MILLIGRAM, ONCE DAILY (QD)
  6. LACOSAMIDE [Suspect]
     Active Substance: LACOSAMIDE
     Indication: Post-traumatic epilepsy
     Dosage: 400 MILLIGRAM, ONCE DAILY (QD)
  7. LACOSAMIDE [Suspect]
     Active Substance: LACOSAMIDE
     Dosage: 600 MILLIGRAM, ONCE DAILY (QD)
  8. VALPROIC ACID [Suspect]
     Active Substance: VALPROIC ACID
     Indication: Status epilepticus
     Dosage: 2 MILLIGRAM/KILOGRAM, QH, 2 MILLIGRAM/KILOGRAM, QH, MAINTENANCE DOSE
  9. VALPROIC ACID [Suspect]
     Active Substance: VALPROIC ACID
     Indication: Post-traumatic epilepsy
     Dosage: UNK
  10. PROPOFOL [Suspect]
     Active Substance: PROPOFOL
     Indication: Status epilepticus
     Dosage: UNK
     Route: 042
  11. THIOPENTAL SODIUM [Suspect]
     Active Substance: THIOPENTAL SODIUM
     Indication: Status epilepticus
     Dosage: UNK
  12. PHENYTOIN [Suspect]
     Active Substance: PHENYTOIN
     Indication: Status epilepticus
     Dosage: 18 MILLIGRAM/KILOGRAM,  IV
     Route: 042
  13. PHENYTOIN [Suspect]
     Active Substance: PHENYTOIN
     Indication: Status epilepticus
  14. PROPOFOL [Suspect]
     Active Substance: PROPOFOL
     Indication: Sedation
     Dosage: UNK WEANED OFF
  15. PROPOFOL [Suspect]
     Active Substance: PROPOFOL
     Indication: Status epilepticus
  16. PROPOFOL [Suspect]
     Active Substance: PROPOFOL
     Indication: Post-traumatic epilepsy
  17. METHYLPREDNISOLONE [Concomitant]
     Active Substance: METHYLPREDNISOLONE
     Indication: Status epilepticus
     Dosage: 100 MILLIGRAM, 1000 MILLIGRAMS FOR 5 DAYS
     Route: 042
  18. METHYLPREDNISOLONE [Concomitant]
     Active Substance: METHYLPREDNISOLONE
     Indication: Post-traumatic epilepsy

REACTIONS (5)
  - Drug ineffective [Unknown]
  - Status epilepticus [Recovered/Resolved]
  - Myoclonus [Recovered/Resolved]
  - Off label use [Unknown]
  - Multiple-drug resistance [Unknown]
